FAERS Safety Report 18575678 (Version 3)
Quarter: 2021Q1

REPORT INFORMATION
  Report Type: Spontaneous
  Country: US (occurrence: US)
  Receive Date: 20201203
  Receipt Date: 20210204
  Transmission Date: 20210419
  Serious: Yes (Other)
  Sender: FDA-Public Use
  Company Number: US-PFIZER INC-2020474925

PATIENT
  Age: 57 Year
  Sex: Male
  Weight: 72.57 kg

DRUGS (1)
  1. DILANTIN [Suspect]
     Active Substance: PHENYTOIN
     Indication: SEIZURE
     Dosage: 400MG ONE DAY, 500MG THE NEXT, AND 900MG EVERY TWO DAYS

REACTIONS (16)
  - Burning sensation [Unknown]
  - Cough [Unknown]
  - Pollakiuria [Unknown]
  - Urticaria [Unknown]
  - Lip swelling [Unknown]
  - Weight decreased [Unknown]
  - Impaired work ability [Unknown]
  - Cyst [Unknown]
  - Paraesthesia [Unknown]
  - Insomnia [Unknown]
  - Hepatomegaly [Unknown]
  - Liver disorder [Unknown]
  - Rash pruritic [Unknown]
  - Product dose omission issue [Unknown]
  - Neuropathy peripheral [Unknown]
  - Skin hyperpigmentation [Unknown]

NARRATIVE: CASE EVENT DATE: 2018
